FAERS Safety Report 9538555 (Version 1)
Quarter: 2013Q2

REPORT INFORMATION
  Report Type: Spontaneous
  Country: US (occurrence: None)
  Receive Date: 20130507
  Receipt Date: 20130507
  Transmission Date: 20140414
  Serious: No
  Sender: FDA-Public Use
  Company Number: PHEH2013US001919

PATIENT
  Sex: Female
  Weight: 81.6 kg

DRUGS (8)
  1. AFINITOR (RAD) TABLET, 10MG [Suspect]
     Route: 048
  2. AROMASIN (EXEMESTANE) TABLET, 25 MG [Concomitant]
  3. ZOLPIDEM (ZOLPIDEM) TABLET, 10 MG [Concomitant]
  4. SYNTHROID (LEVOTHYROXINE SODIUM) TABLET [Concomitant]
  5. OMEPRAZOLE (OMEPRAZOLE) CAPSULE, 10 MG [Concomitant]
  6. WELLBUTRIN (BUPROPION HYDROCHLORIDE) TABLET, 75 MG? [Concomitant]
  7. TEMAZEPAM (TEMAZEPAM) CAPSULE, 30 MG [Concomitant]
  8. XGEVA (DENOSUMAB) INJECTION [Concomitant]

REACTIONS (2)
  - Stomatitis [None]
  - Fatigue [None]
